FAERS Safety Report 21612677 (Version 2)
Quarter: 2022Q4

REPORT INFORMATION
  Report Type: Spontaneous
  Country: US (occurrence: US)
  Receive Date: 20221118
  Receipt Date: 20221129
  Transmission Date: 20230113
  Serious: No
  Sender: FDA-Public Use
  Company Number: US-AIMMUNE THERAPEUTICS, INC.-2022AIMT02731

PATIENT

DRUGS (3)
  1. PALFORZIA [Suspect]
     Active Substance: PEANUT
     Indication: Food allergy
     Dosage: IDE (0.5-6MG), ONCE
     Route: 048
     Dates: start: 20220912, end: 202209
  2. PALFORZIA [Suspect]
     Active Substance: PEANUT
     Dosage: 5 MG, 1X/DAY
     Route: 048
     Dates: start: 202209, end: 20221111
  3. PALFORZIA [Suspect]
     Active Substance: PEANUT
     Dosage: 5 MG, ONCE, LAST DOSE PRIOR TO EVENTS
     Route: 048

REACTIONS (4)
  - Chest discomfort [Recovered/Resolved]
  - Oropharyngeal discomfort [Recovered/Resolved]
  - Throat clearing [Recovered/Resolved]
  - Underdose [Recovered/Resolved]

NARRATIVE: CASE EVENT DATE: 20220901
